FAERS Safety Report 5048819-0 (Version None)
Quarter: 2006Q3

REPORT INFORMATION
  Report Type: 
  Country: None (occurrence: None)
  Receive Date: 20060706
  Receipt Date: 20060626
  Transmission Date: 20061208
  Serious: Yes (Hospitalization, Other)
  Sender: FDA-Public Use
  Company Number: DEWYE800826JUN06

PATIENT
  Age: 67 Year
  Sex: Female

DRUGS (22)
  1. VENLAFAXINE HCL [Suspect]
     Dosage: SEE IMAGE
     Route: 048
     Dates: start: 20050715, end: 20050715
  2. VENLAFAXINE HCL [Suspect]
     Dosage: SEE IMAGE
     Route: 048
     Dates: start: 20050716, end: 20050802
  3. VENLAFAXINE HCL [Suspect]
     Dosage: SEE IMAGE
     Route: 048
     Dates: start: 20050803, end: 20050803
  4. AKINETON [Suspect]
     Dates: start: 20050816, end: 20050818
  5. ARICEPT [Suspect]
     Dosage: 5 MG
     Dates: start: 20050816, end: 20050823
  6. CIPRALEX (ESCITALOPRAM, , 0) [Suspect]
     Dosage: 5 MG
     Dates: start: 20050805, end: 20050808
  7. HYPNOREX (LITHIUM CARBONATE, , 0) [Suspect]
     Dosage: SEE IMAGE
     Route: 048
     Dates: start: 19940101, end: 20050731
  8. HYPNOREX (LITHIUM CARBONATE, , 0) [Suspect]
     Dosage: SEE IMAGE
     Route: 048
     Dates: start: 20050801, end: 20050806
  9. HYPNOREX (LITHIUM CARBONATE, , 0) [Suspect]
     Dosage: SEE IMAGE
     Route: 048
     Dates: start: 20050807, end: 20050807
  10. HYPNOREX (LITHIUM CARBONATE, , 0) [Suspect]
     Dosage: SEE IMAGE
     Route: 048
     Dates: start: 20050808, end: 20050808
  11. SEROQUEL [Suspect]
     Dosage: SEE IMAGE
     Route: 048
     Dates: start: 20050708, end: 20050720
  12. SEROQUEL [Suspect]
     Dosage: SEE IMAGE
     Route: 048
     Dates: start: 20050721, end: 20050731
  13. SEROQUEL [Suspect]
     Dosage: SEE IMAGE
     Route: 048
     Dates: start: 20050801, end: 20050801
  14. SEROQUEL [Suspect]
     Dosage: SEE IMAGE
     Route: 048
     Dates: start: 20050802, end: 20050802
  15. SEROQUEL [Suspect]
     Dosage: SEE IMAGE
     Route: 048
     Dates: start: 20050803, end: 20050804
  16. SEROQUEL [Suspect]
     Dosage: SEE IMAGE
     Route: 048
     Dates: start: 20050805, end: 20050807
  17. SEROQUEL [Suspect]
     Dosage: SEE IMAGE
     Route: 048
     Dates: start: 20050808, end: 20050808
  18. ZOLOFT [Suspect]
     Dosage: SEE IMAGE
     Dates: start: 20050816, end: 20050821
  19. ZOLOFT [Suspect]
     Dosage: SEE IMAGE
     Dates: start: 20050822
  20. PRESOMEN (ESTROGENS CONJUGATED) [Concomitant]
  21. IODIDE (IODIDE) [Concomitant]
  22. LORAZEPAM [Concomitant]

REACTIONS (10)
  - CONFUSIONAL STATE [None]
  - DELIRIUM [None]
  - DISORIENTATION [None]
  - DISTURBANCE IN ATTENTION [None]
  - DRUG INTERACTION [None]
  - MEMORY IMPAIRMENT [None]
  - RESTLESSNESS [None]
  - SLEEP DISORDER [None]
  - SPEECH DISORDER [None]
  - THINKING ABNORMAL [None]
